FAERS Safety Report 24347325 (Version 1)
Quarter: 2024Q3

REPORT INFORMATION
  Report Type: Spontaneous
  Country: JP (occurrence: JP)
  Receive Date: 20240921
  Receipt Date: 20240921
  Transmission Date: 20241016
  Serious: Yes (Life-Threatening, Other)
  Sender: DAIICHI
  Company Number: JP-DSJP-DS-2024-100395-JP

PATIENT
  Age: 6 Decade
  Sex: Female
  Weight: 52 kg

DRUGS (2)
  1. EDOXABAN TOSYLATE [Suspect]
     Active Substance: EDOXABAN TOSYLATE
     Indication: Product used for unknown indication
     Dosage: 30 MG
     Route: 048
  2. EDOXABAN TOSYLATE [Suspect]
     Active Substance: EDOXABAN TOSYLATE
     Dosage: UNK
     Route: 048

REACTIONS (1)
  - Post procedural haemorrhage [Recovering/Resolving]
